FAERS Safety Report 23779627 (Version 4)
Quarter: 2025Q3

REPORT INFORMATION
  Report Type: Report from Study
  Country: EU (occurrence: EU)
  Receive Date: 20240424
  Receipt Date: 20250922
  Transmission Date: 20251020
  Serious: Yes (Hospitalization, Other)
  Sender: TAKEDA
  Company Number: EU-TAKEDA-2024TUS037532

PATIENT
  Age: 11 Year
  Sex: Female

DRUGS (13)
  1. TEDUGLUTIDE [Suspect]
     Active Substance: TEDUGLUTIDE
     Indication: Short-bowel syndrome
     Dosage: 0.8 MILLIGRAM, QD
     Dates: start: 20180525, end: 20210602
  2. TEDUGLUTIDE [Suspect]
     Active Substance: TEDUGLUTIDE
     Dosage: 1 MILLIGRAM, QD
     Dates: start: 20221102, end: 20250122
  3. TEDUGLUTIDE [Suspect]
     Active Substance: TEDUGLUTIDE
     Dosage: 1.2 MILLIGRAM, QD
     Dates: start: 20250122, end: 20250210
  4. TEDUGLUTIDE [Suspect]
     Active Substance: TEDUGLUTIDE
     Dosage: 1.2 MILLIGRAM, QD
     Dates: start: 20250218, end: 20250409
  5. TEDUGLUTIDE [Suspect]
     Active Substance: TEDUGLUTIDE
     Dosage: 1.2 MILLIGRAM, QD
     Dates: start: 202506
  6. SULFAMETHOXAZOLE\TRIMETHOPRIM [Concomitant]
     Active Substance: SULFAMETHOXAZOLE\TRIMETHOPRIM
     Indication: Gastrointestinal disorder
  7. CALCIUM CARBONATE\CHOLECALCIFEROL [Concomitant]
     Active Substance: CALCIUM CARBONATE\CHOLECALCIFEROL
     Indication: Fracture
     Dosage: 400 INTERNATIONAL UNIT, QD
     Dates: start: 20240119, end: 20240405
  8. CYTOTEC [Concomitant]
     Active Substance: MISOPROSTOL
     Indication: Ulcer
     Dosage: 200 MILLIGRAM, TID
     Dates: start: 20240119, end: 20240405
  9. SUCRALFATE [Concomitant]
     Active Substance: SUCRALFATE
     Indication: Ulcer
     Dosage: 1 GRAM, TID
     Dates: start: 20240119, end: 20240405
  10. URSODIOL [Concomitant]
     Active Substance: URSODIOL
     Dosage: 150 MILLIGRAM, BID
     Dates: start: 20200831
  11. PREDNISOLONE [Concomitant]
     Active Substance: PREDNISOLONE
     Indication: Abdominal pain
  12. MEBEVERINE [Concomitant]
     Active Substance: MEBEVERINE
     Indication: Abdominal pain
     Dosage: 135 MILLIGRAM, QD
     Dates: start: 20250429
  13. Prodefen [Concomitant]
     Indication: Dysbiosis

REACTIONS (4)
  - Gastroenteritis [Recovered/Resolved]
  - Device breakage [Recovered/Resolved]
  - Gastrointestinal haemorrhage [Not Recovered/Not Resolved]
  - Metabolic alkalosis [Recovered/Resolved]

NARRATIVE: CASE EVENT DATE: 20240101
